FAERS Safety Report 5141649-0 (Version None)
Quarter: 2006Q4

REPORT INFORMATION
  Report Type: 
  Country: None (occurrence: None)
  Receive Date: 20061026
  Receipt Date: 20061005
  Transmission Date: 20070319
  Serious: Yes (Other)
  Sender: FDA-Public Use
  Company Number: 2006SP003831

PATIENT
  Age: 13 Year
  Sex: Male

DRUGS (1)
  1. ASMANEX TWISTHALER [Suspect]
     Indication: DRUG USE FOR UNKNOWN INDICATION
     Dosage: 220 MCG;QD;INH
     Route: 055
     Dates: start: 20060821, end: 20061005

REACTIONS (1)
  - SUICIDAL IDEATION [None]
